FAERS Safety Report 10331594 (Version 1)
Quarter: 2014Q3

REPORT INFORMATION
  Report Type: Spontaneous
  Country: CA (occurrence: CA)
  Receive Date: 20140722
  Receipt Date: 20140722
  Transmission Date: 20150326
  Serious: Yes (Hospitalization)
  Sender: FDA-Public Use
  Company Number: CA-PFIZER INC-2014198240

PATIENT
  Age: 61 Year
  Sex: Female
  Weight: 100 kg

DRUGS (11)
  1. NOVOLIN [Concomitant]
     Active Substance: INSULIN HUMAN
  2. ATORVASTATIN CALCIUM. [Concomitant]
     Active Substance: ATORVASTATIN CALCIUM
  3. INDAPAMIDE. [Concomitant]
     Active Substance: INDAPAMIDE
  4. LOSARTAN [Concomitant]
     Active Substance: LOSARTAN
  5. ESTROGENS CONJUGATED [Suspect]
     Active Substance: ESTROGENS, CONJUGATED
     Dosage: 0.625 MG, 1X/DAY
     Route: 048
  6. CITALOPRAM [Concomitant]
     Active Substance: CITALOPRAM HYDROBROMIDE
  7. LANSOPRAZOLE. [Concomitant]
     Active Substance: LANSOPRAZOLE
  8. DESLORATADINE. [Concomitant]
     Active Substance: DESLORATADINE
  9. NASONEX [Concomitant]
     Active Substance: MOMETASONE FUROATE
  10. NOVOLIN 30/70 INJ SUS [Concomitant]
  11. MEDROXYPROGESTERONE ACETATE. [Suspect]
     Active Substance: MEDROXYPROGESTERONE ACETATE
     Dosage: 2.5 MG, 1X/DAY
     Route: 048

REACTIONS (3)
  - Pneumonia [Recovered/Resolved]
  - Pulmonary embolism [Recovered/Resolved]
  - Thrombophlebitis superficial [Recovered/Resolved]
